FAERS Safety Report 7461149-2 (Version None)
Quarter: 2011Q2

REPORT INFORMATION
  Report Type: 
  Country: None (occurrence: None)
  Receive Date: 20110505
  Receipt Date: 20101022
  Transmission Date: 20111010
  Serious: No
  Sender: FDA-Public Use
  Company Number: US-AMGEN-USASP2010001462

PATIENT
  Age: 61 Year
  Sex: Female

DRUGS (1)
  1. ENBREL [Suspect]
     Indication: RHEUMATOID ARTHRITIS
     Dosage: 50 MG, QWK
     Dates: start: 20101005

REACTIONS (9)
  - PRURITUS [None]
  - SNEEZING [None]
  - ARTHRALGIA [None]
  - SWELLING [None]
  - NASAL CONGESTION [None]
  - HEADACHE [None]
  - ANXIETY [None]
  - ERYTHEMA [None]
  - INJECTION SITE PAIN [None]
